FAERS Safety Report 18565242 (Version 1)
Quarter: 2020Q4

REPORT INFORMATION
  Report Type: Other
  Country: AU (occurrence: AU)
  Receive Date: 20201201
  Receipt Date: 20201201
  Transmission Date: 20210114
  Serious: Yes (Hospitalization, Other)
  Sender: FDA-Public Use
  Company Number: AU-VALIDUS PHARMACEUTICALS LLC-AU-2020VAL000999

PATIENT

DRUGS (11)
  1. COLECALCIFEROL [Suspect]
     Active Substance: CHOLECALCIFEROL
     Indication: PRODUCT USED FOR UNKNOWN INDICATION
     Dosage: 25 ?G, QD
     Route: 048
  2. METFORMIN HYDROCHLORIDE. [Suspect]
     Active Substance: METFORMIN HYDROCHLORIDE
     Indication: PRODUCT USED FOR UNKNOWN INDICATION
     Dosage: UNK
     Route: 065
  3. CLOZAPINE. [Suspect]
     Active Substance: CLOZAPINE
     Indication: PRODUCT USED FOR UNKNOWN INDICATION
     Dosage: UNK
     Route: 065
  4. LORAZEPAM. [Suspect]
     Active Substance: LORAZEPAM
     Indication: PRODUCT USED FOR UNKNOWN INDICATION
     Dosage: 0.5 MG, TID
     Route: 048
  5. CLOZAPINE. [Suspect]
     Active Substance: CLOZAPINE
     Dosage: 375 MG, UNK
     Route: 065
     Dates: start: 20200402, end: 202005
  6. ZUCLOPENTHIXOL HYDROCHLORIDE [Suspect]
     Active Substance: ZUCLOPENTHIXOL HYDROCHLORIDE
     Indication: SCHIZOPHRENIA
     Dosage: 300 MG, UNK
     Route: 065
     Dates: start: 20200520
  7. ERGOCALCIFEROL. [Suspect]
     Active Substance: ERGOCALCIFEROL
     Indication: PRODUCT USED FOR UNKNOWN INDICATION
     Dosage: UNK
     Route: 065
  8. OLANZAPINE. [Suspect]
     Active Substance: OLANZAPINE
     Indication: SCHIZOPHRENIA
     Dosage: 10 MG, UNK
     Route: 048
     Dates: start: 20200520
  9. VALPROATE SODIUM. [Suspect]
     Active Substance: VALPROATE SODIUM
     Indication: PRODUCT USED FOR UNKNOWN INDICATION
     Dosage: 1500 MG, QD (500 MG IN MORNING AND 1000 MG IN NIGHT)
     Route: 065
  10. OLANZAPINE. [Suspect]
     Active Substance: OLANZAPINE
     Dosage: 15 MG, BID
     Route: 048
  11. PANTOPRAZOLE [Suspect]
     Active Substance: PANTOPRAZOLE
     Indication: PRODUCT USED FOR UNKNOWN INDICATION
     Dosage: 40 MG, BID
     Route: 048

REACTIONS (9)
  - Schizophrenia [Unknown]
  - Mental impairment [Unknown]
  - Disease recurrence [Unknown]
  - Electrocardiogram T wave inversion [Unknown]
  - Escherichia urinary tract infection [Unknown]
  - Psychotic symptom [Unknown]
  - Chest pain [Unknown]
  - Pyrexia [Unknown]
  - Malaise [Unknown]

NARRATIVE: CASE EVENT DATE: 202008
